FAERS Safety Report 5569468-1 (Version None)
Quarter: 2007Q4

REPORT INFORMATION
  Report Type: 
  Country: None (occurrence: None)
  Receive Date: 20071220
  Receipt Date: 20071217
  Transmission Date: 20080405
  Serious: Yes (Other)
  Sender: FDA-Public Use
  Company Number: PHEH2007US15508

PATIENT
  Age: 17 Year
  Sex: Female
  Weight: 63 kg

DRUGS (4)
  1. TOBI [Suspect]
     Indication: PSEUDOMONAS INFECTION
     Dosage: 300 MG, BID
     Dates: start: 19980301, end: 20050608
  2. BACTRIM [Concomitant]
  3. ENZYMES [Concomitant]
  4. SODIUM CHLORIDE 0.9% [Concomitant]

REACTIONS (5)
  - COUGH [None]
  - DISEASE PROGRESSION [None]
  - HYPERSENSITIVITY [None]
  - PRURITUS [None]
  - THROAT TIGHTNESS [None]
